FAERS Safety Report 5628903-0 (Version None)
Quarter: 2008Q1

REPORT INFORMATION
  Report Type: 
  Country: None (occurrence: None)
  Receive Date: 20080215
  Receipt Date: 20080206
  Transmission Date: 20080703
  Serious: Yes (Other)
  Sender: FDA-Public Use
  Company Number: US-PFIZER INC-2008013478

PATIENT
  Sex: Female
  Weight: 76.7 kg

DRUGS (1)
  1. CHANTIX [Suspect]
     Route: 048

REACTIONS (9)
  - ABDOMINAL PAIN UPPER [None]
  - AFFECTIVE DISORDER [None]
  - AGGRESSION [None]
  - AGITATION [None]
  - CHEST PAIN [None]
  - DEPRESSION [None]
  - IRRITABILITY [None]
  - PANIC ATTACK [None]
  - SUICIDAL IDEATION [None]
